FAERS Safety Report 10019394 (Version 1)
Quarter: 2014Q1

REPORT INFORMATION
  Report Type: Spontaneous
  Country: GB (occurrence: GB)
  Receive Date: 20140318
  Receipt Date: 20140318
  Transmission Date: 20141002
  Serious: Yes (Disabling, Other)
  Sender: FDA-Public Use
  Company Number: GB-WATSON-2014-04830

PATIENT
  Age: 14 Year
  Sex: Male
  Weight: 77 kg

DRUGS (1)
  1. TETRACYCLINE [Suspect]
     Indication: ACNE
     Dosage: UNK; POSSIBLY STARTED 1 YEAR BEFORE
     Route: 065
     Dates: end: 20140203

REACTIONS (3)
  - Intracranial pressure increased [Recovering/Resolving]
  - Headache [Recovering/Resolving]
  - Papilloedema [Recovering/Resolving]
